FAERS Safety Report 13349754 (Version 1)
Quarter: 2017Q1

REPORT INFORMATION
  Report Type: Spontaneous
  Country: HU (occurrence: HU)
  Receive Date: 20170320
  Receipt Date: 20170320
  Transmission Date: 20170429
  Serious: Yes (Life-Threatening, Hospitalization, Other)
  Sender: FDA-Public Use
  Company Number: HU-TEVA-749003ACC

PATIENT
  Age: 48 Year
  Sex: Female

DRUGS (5)
  1. PARETIN [Concomitant]
     Dosage: 20 MILLIGRAM DAILY;
  2. PACLITAXEL TEVA 6MG/ML [Suspect]
     Active Substance: PACLITAXEL
     Indication: LUNG ADENOCARCINOMA
     Route: 041
     Dates: start: 20170221, end: 20170221
  3. FRONTIN [Concomitant]
     Active Substance: ALPRAZOLAM
     Dosage: .75 MILLIGRAM DAILY;
  4. CARBOPLATIN. [Concomitant]
     Active Substance: CARBOPLATIN
     Indication: LUNG ADENOCARCINOMA
  5. MIAGEN [Concomitant]
     Dosage: 30 MILLIGRAM DAILY;

REACTIONS (4)
  - Loss of consciousness [Recovered/Resolved]
  - Anaphylactic shock [Recovered/Resolved]
  - Respiratory failure [Recovered/Resolved]
  - Circulatory collapse [Recovered/Resolved]

NARRATIVE: CASE EVENT DATE: 20170221
